FAERS Safety Report 16368211 (Version 1)
Quarter: 2019Q2

REPORT INFORMATION
  Report Type: Report from Study
  Country: None (occurrence: BR)
  Receive Date: 20190529
  Receipt Date: 20190529
  Transmission Date: 20190711
  Serious: Yes (Other)
  Sender: FDA-Public Use
  Company Number: BR-ABBVIE-19K-020-2794443-00

PATIENT
  Age: 71 Year
  Sex: Male
  Weight: 84 kg

DRUGS (4)
  1. HUMIRA [Suspect]
     Active Substance: ADALIMUMAB
     Indication: PSORIASIS
     Route: 058
     Dates: start: 20181123
  2. INFLUENZA VACCINE [Suspect]
     Active Substance: INFLUENZA VIRUS VACCINE
     Indication: PRODUCT USED FOR UNKNOWN INDICATION
     Route: 065
     Dates: start: 20190410
  3. HUMIRA [Suspect]
     Active Substance: ADALIMUMAB
     Route: 058
  4. HUMIRA [Suspect]
     Active Substance: ADALIMUMAB
     Route: 058
     Dates: start: 20190516

REACTIONS (8)
  - Mass [Unknown]
  - Skin irritation [Unknown]
  - Pain in extremity [Unknown]
  - Asthenia [Unknown]
  - Malaise [Unknown]
  - Peripheral swelling [Unknown]
  - Skin discolouration [Unknown]
  - Psoriasis [Unknown]

NARRATIVE: CASE EVENT DATE: 20190412
